FAERS Safety Report 25092931 (Version 1)
Quarter: 2025Q1

REPORT INFORMATION
  Report Type: Spontaneous
  Country: GB (occurrence: GB)
  Receive Date: 20250319
  Receipt Date: 20250319
  Transmission Date: 20250409
  Serious: Yes (Other)
  Sender: JUBILANT
  Company Number: None

PATIENT
  Age: 44 Year
  Sex: Male

DRUGS (9)
  1. OLANZAPINE [Suspect]
     Active Substance: OLANZAPINE
     Indication: Product used for unknown indication
     Route: 065
     Dates: start: 201901
  2. ABILIFY MAINTENA [Suspect]
     Active Substance: ARIPIPRAZOLE
     Indication: Product used for unknown indication
     Route: 065
     Dates: start: 201901, end: 201909
  3. ABILIFY MAINTENA [Suspect]
     Active Substance: ARIPIPRAZOLE
     Route: 065
  4. ABILIFY [Suspect]
     Active Substance: ARIPIPRAZOLE
     Indication: Product used for unknown indication
     Route: 065
     Dates: start: 201901
  5. CLOZARIL [Suspect]
     Active Substance: CLOZAPINE
     Indication: Product used for unknown indication
     Route: 065
     Dates: start: 201901
  6. AMISULPRIDE [Suspect]
     Active Substance: AMISULPRIDE
     Indication: Product used for unknown indication
     Dosage: 200 MG, ONCE PER DAY
     Route: 065
     Dates: start: 201901
  7. AMISULPRIDE [Suspect]
     Active Substance: AMISULPRIDE
     Dosage: 800 MG, ONCE PER DAY (400 MG, BID (MORNING AND EVENING))
     Route: 065
  8. QUETIAPINE [Suspect]
     Active Substance: QUETIAPINE
     Indication: Product used for unknown indication
     Route: 065
  9. DIAZEPAM [Concomitant]
     Active Substance: DIAZEPAM
     Indication: Product used for unknown indication
     Route: 065

REACTIONS (26)
  - Petit mal epilepsy [Not Recovered/Not Resolved]
  - Retrograde ejaculation [Unknown]
  - Loss of consciousness [Unknown]
  - Hallucination, auditory [Not Recovered/Not Resolved]
  - Erectile dysfunction [Unknown]
  - Testicular pain [Unknown]
  - Testicular atrophy [Not Recovered/Not Resolved]
  - Sexual life impairment [Not Recovered/Not Resolved]
  - Ejaculation failure [Not Recovered/Not Resolved]
  - Hypoacusis [Not Recovered/Not Resolved]
  - Excessive sexual fantasies [Unknown]
  - Stress [Unknown]
  - Semen volume decreased [Unknown]
  - Skin exfoliation [Unknown]
  - Sexual dysfunction [Not Recovered/Not Resolved]
  - Amnesia [Unknown]
  - Dysuria [Unknown]
  - Mental disorder [Unknown]
  - Malaise [Unknown]
  - Libido decreased [Unknown]
  - Weight increased [Unknown]
  - Insomnia [Not Recovered/Not Resolved]
  - Constipation [Unknown]
  - Headache [Unknown]
  - Alopecia [Unknown]
  - Hypertension [Unknown]

NARRATIVE: CASE EVENT DATE: 20190101
